FAERS Safety Report 10667401 (Version 1)
Quarter: 2014Q4

REPORT INFORMATION
  Report Type: Spontaneous
  Country: FR (occurrence: FR)
  Receive Date: 20141222
  Receipt Date: 20141222
  Transmission Date: 20150529
  Serious: Yes (Life-Threatening, Hospitalization)
  Sender: FDA-Public Use
  Company Number: FR-JNJFOC-20141206682

PATIENT
  Age: 72 Year
  Sex: Female

DRUGS (5)
  1. MEPRONIZINE [Suspect]
     Active Substance: ACEPROMETAZINE MALEATE\MEPROBAMATE
     Indication: PRODUCT USED FOR UNKNOWN INDICATION
     Route: 048
  2. NOCTAMIDE [Concomitant]
     Active Substance: LORMETAZEPAM
     Indication: DEPRESSION
     Route: 065
  3. NOCTAMIDE [Concomitant]
     Active Substance: LORMETAZEPAM
     Indication: BIPOLAR DISORDER
     Route: 065
  4. RISPERDAL [Suspect]
     Active Substance: RISPERIDONE
     Indication: MAJOR DEPRESSION
     Route: 048
     Dates: start: 20141023, end: 20141025
  5. PARACETAMOL [Suspect]
     Active Substance: ACETAMINOPHEN
     Indication: PRODUCT USED FOR UNKNOWN INDICATION
     Route: 048

REACTIONS (7)
  - Nervous system disorder [Recovering/Resolving]
  - Intentional product misuse [Unknown]
  - Dysuria [Recovered/Resolved]
  - Suicidal ideation [Recovered/Resolved]
  - Product use issue [Unknown]
  - Suicide attempt [Recovered/Resolved]
  - Loss of consciousness [Recovering/Resolving]

NARRATIVE: CASE EVENT DATE: 20141023
